FAERS Safety Report 9901280 (Version 2)
Quarter: 2015Q1

REPORT INFORMATION
  Report Type: Spontaneous
  Country: US (occurrence: US)
  Receive Date: 20140217
  Receipt Date: 20150310
  Transmission Date: 20150721
  Serious: Yes (Hospitalization)
  Sender: FDA-Public Use
  Company Number: US-BAYER-2014-024296

PATIENT
  Age: 22 Year
  Sex: Female
  Weight: 63.49 kg

DRUGS (1)
  1. MIRENA [Suspect]
     Active Substance: LEVONORGESTREL
     Indication: CONTRACEPTION
     Dosage: 20 MCG/24HR, CONT
     Route: 015
     Dates: start: 201203, end: 20130416

REACTIONS (9)
  - Injury [None]
  - Medical device pain [None]
  - Pregnancy with contraceptive device [None]
  - Medical device discomfort [None]
  - Uterine perforation [None]
  - Procedural pain [None]
  - Abortion spontaneous [None]
  - Drug ineffective [None]
  - Scar [None]

NARRATIVE: CASE EVENT DATE: 2013
